FAERS Safety Report 5492886-7 (Version None)
Quarter: 2007Q4

REPORT INFORMATION
  Report Type: 
  Country: None (occurrence: None)
  Receive Date: 20071023
  Receipt Date: 20071018
  Transmission Date: 20080405
  Serious: Yes (Disabling)
  Sender: FDA-Public Use
  Company Number: CA-ASTRAZENECA-2006UW26928

PATIENT
  Age: 59 Year
  Sex: Female
  Weight: 72.7 kg

DRUGS (4)
  1. ARIMIDEX [Suspect]
     Indication: BREAST CANCER FEMALE
     Route: 048
     Dates: start: 20050501, end: 20061201
  2. AMILORIDE HCL AND HYDROCHLOROTHIAZIDE [Concomitant]
     Indication: OEDEMA PERIPHERAL
     Route: 048
     Dates: start: 19900101
  3. SLOW-K [Concomitant]
     Indication: MINERAL SUPPLEMENTATION
     Dosage: ONE DAILY
     Route: 048
     Dates: start: 20060701
  4. CLONIDINE [Concomitant]
     Indication: MENOPAUSAL SYMPTOMS
     Dosage: TWO DAILY
     Route: 048
     Dates: start: 20051201

REACTIONS (1)
  - VERTIGO [None]
